FAERS Safety Report 6155043-7 (Version None)
Quarter: 2009Q2

REPORT INFORMATION
  Report Type: 
  Country: None (occurrence: None)
  Receive Date: 20090414
  Receipt Date: 20090330
  Transmission Date: 20091009
  Serious: Yes (Other)
  Sender: FDA-Public Use
  Company Number: DE-GENENTECH-266998

PATIENT
  Age: 67 Year
  Sex: Male

DRUGS (5)
  1. MABTHERA [Suspect]
     Indication: ANTI-NEUTROPHIL CYTOPLASMIC ANTIBODY POSITIVE VASCULITIS
     Dosage: 375 MG/M2, X4
  2. TRIMETHOPRIM + SULFAMETHOXAZOLE [Suspect]
     Indication: DRUG USE FOR UNKNOWN INDICATION
     Route: 065
  3. RANITIDINE [Concomitant]
     Indication: DRUG USE FOR UNKNOWN INDICATION
     Dosage: 50 MG, UNK
  4. CLEMASTINE [Concomitant]
     Indication: DRUG USE FOR UNKNOWN INDICATION
     Dosage: 2 MG, UNK
  5. PREDNISOLONE [Concomitant]
     Indication: DRUG USE FOR UNKNOWN INDICATION
     Dosage: 100 MG, UNK
     Route: 042

REACTIONS (1)
  - LEUKOPENIA [None]
